FAERS Safety Report 12740204 (Version 1)
Quarter: 2016Q3

REPORT INFORMATION
  Report Type: Spontaneous
  Country: US (occurrence: US)
  Receive Date: 20160913
  Receipt Date: 20160913
  Transmission Date: 20161109
  Serious: No
  Sender: FDA-Public Use
  Company Number: US-GLAXOSMITHKLINE-US2016132181

PATIENT
  Age: 54 Year
  Sex: Male

DRUGS (2)
  1. TRANSDERM SCOP [Suspect]
     Active Substance: SCOPOLAMINE
     Indication: MOTION SICKNESS
     Dosage: 1 DF, UNK, 1 PATCH EVERY 3 DAYS
  2. TRANSDERM SCOP [Suspect]
     Active Substance: SCOPOLAMINE
     Indication: DIZZINESS

REACTIONS (9)
  - Application site irritation [Unknown]
  - Nasal operation [Unknown]
  - Drug administered at inappropriate site [Unknown]
  - Off label use [Unknown]
  - Application site reaction [Unknown]
  - Nasal polyps [Unknown]
  - Nasal septum deviation [Unknown]
  - Application site pruritus [Unknown]
  - Dizziness [Unknown]

NARRATIVE: CASE EVENT DATE: 2004
